FAERS Safety Report 9423819 (Version 2)
Quarter: 2013Q3

REPORT INFORMATION
  Report Type: Spontaneous
  Country: JP (occurrence: JP)
  Receive Date: 20130729
  Receipt Date: 20130801
  Transmission Date: 20140515
  Serious: Yes (Hospitalization, Other)
  Sender: FDA-Public Use
  Company Number: JP-ROCHE-728595

PATIENT
  Age: 79 Year
  Sex: Male
  Weight: 40 kg

DRUGS (7)
  1. XELODA [Suspect]
     Indication: COLON CANCER METASTATIC
     Route: 048
     Dates: start: 20100625, end: 20100705
  2. XELODA [Suspect]
     Indication: COLON CANCER METASTATIC
     Dosage: DOSAGE IS UNCERTAIN
     Route: 048
  3. XELODA [Suspect]
     Indication: COLON CANCER METASTATIC
     Dosage: 2 WEEKS ADMINISTRATION FOLLOWED BY 1 WEEKS REST
     Route: 048
  4. AVASTIN [Suspect]
     Indication: COLON CANCER METASTATIC
     Route: 041
  5. ELPLAT [Suspect]
     Indication: COLON CANCER METASTATIC
     Route: 041
     Dates: start: 20100625, end: 20100625
  6. DECADRON [Suspect]
     Indication: PROPHYLAXIS
     Route: 042
  7. DECADRON [Suspect]
     Indication: PROPHYLAXIS
     Route: 048

REACTIONS (4)
  - Gastric ulcer haemorrhage [Recovered/Resolved]
  - Gastric ulcer [Recovered/Resolved]
  - Neuropathy peripheral [Recovering/Resolving]
  - Metastases to lung [Unknown]
